FAERS Safety Report 4267088-2 (Version None)
Quarter: 2004Q1

REPORT INFORMATION
  Report Type: 
  Country: None (occurrence: None)
  Receive Date: 20040107
  Receipt Date: 20030609
  Transmission Date: 20041129
  Serious: Yes (Disabling)
  Sender: FDA-Public Use
  Company Number: HQ8344912NOV2001

PATIENT
  Age: 43 Year
  Sex: Female

DRUGS (6)
  1. DIMETAPP [Suspect]
     Dosage: ORAL
     Route: 048
  2. ALKA-SELTZER PLUS NIGHT-TIME COLD (DEXTROMETHORPHAN HYDROBROMIDE/DOXYL [Suspect]
     Indication: SINUSITIS
     Dosage: UNKNOWN DOSE THREE TIMES WEEKLY, ORAL
     Route: 048
     Dates: start: 19990101, end: 19991203
  3. CONTAC [Suspect]
     Dosage: ORAL
     Route: 048
  4. DEXATRIM (CAFFEINE/PHENYLPROPANOLAMINE HYDROCHLORIDE, ) [Suspect]
     Dosage: ORAL
     Route: 048
  5. TAVIST D [Suspect]
     Dosage: ORAL
     Route: 048
  6. UNKNOWN (UNKNOWN, ) [Suspect]
     Dosage: UNKNOWN

REACTIONS (2)
  - CEREBROVASCULAR ACCIDENT [None]
  - INJURY [None]
